FAERS Safety Report 6156495-9 (Version None)
Quarter: 2009Q2

REPORT INFORMATION
  Report Type: 
  Country: None (occurrence: None)
  Receive Date: 20090413
  Receipt Date: 20081001
  Transmission Date: 20091009
  Serious: Yes (Other)
  Sender: FDA-Public Use
  Company Number: OPER20080198

PATIENT
  Sex: Female

DRUGS (1)
  1. OPANA ER [Suspect]
     Indication: PAIN
     Dosage: TWICE DAILY, PRN WHEN PAIN IS VERY BAD
     Dates: start: 20080101

REACTIONS (4)
  - DIZZINESS [None]
  - FEAR [None]
  - MEDICATION ERROR [None]
  - TREATMENT NONCOMPLIANCE [None]
